APPROVED DRUG PRODUCT: METOCLOPRAMIDE HYDROCHLORIDE
Active Ingredient: METOCLOPRAMIDE HYDROCHLORIDE
Strength: EQ 10MG BASE
Dosage Form/Route: TABLET;ORAL
Application: A070453 | Product #001
Applicant: WATSON LABORATORIES INC
Approved: Jun 6, 1986 | RLD: No | RS: No | Type: DISCN